FAERS Safety Report 18691087 (Version 1)
Quarter: 2021Q1

REPORT INFORMATION
  Report Type: Spontaneous
  Country: US (occurrence: US)
  Receive Date: 20210101
  Receipt Date: 20210101
  Transmission Date: 20210419
  Serious: No
  Sender: FDA-Public Use
  Company Number: US-ASTRAZENECA-2020SF64141

PATIENT
  Sex: Female

DRUGS (1)
  1. SYMBICORT [Suspect]
     Active Substance: BUDESONIDE\FORMOTEROL FUMARATE DIHYDRATE
     Dosage: 160 MCG, INHALATIONS,TWO TIMES A DAY
     Route: 055

REACTIONS (4)
  - Myalgia [Unknown]
  - Headache [Unknown]
  - Diarrhoea [Unknown]
  - Dysphonia [Unknown]
